FAERS Safety Report 8040754-9 (Version None)
Quarter: 2012Q1

REPORT INFORMATION
  Report Type: 
  Country: None (occurrence: None)
  Receive Date: 20120111
  Receipt Date: 20111229
  Transmission Date: 20120608
  Serious: No
  Sender: FDA-Public Use
  Company Number: US-AMGEN-USASP2011068708

PATIENT
  Age: 65 Year
  Sex: Female

DRUGS (1)
  1. ENBREL [Suspect]
     Indication: RHEUMATOID ARTHRITIS
     Dosage: 50 MG, QWK
     Dates: start: 20111219

REACTIONS (10)
  - SOMNOLENCE [None]
  - BLOOD GLUCOSE INCREASED [None]
  - GAIT DISTURBANCE [None]
  - ASTHENIA [None]
  - JOINT STIFFNESS [None]
  - BLOOD IRON DECREASED [None]
  - ERYTHEMA [None]
  - EAR PRURITUS [None]
  - ABDOMINAL DISCOMFORT [None]
  - POLLAKIURIA [None]
